FAERS Safety Report 8470730-3 (Version None)
Quarter: 2012Q2

REPORT INFORMATION
  Report Type: 
  Country: None (occurrence: None)
  Receive Date: 20120627
  Receipt Date: 20120620
  Transmission Date: 20120825
  Serious: Yes (Other)
  Sender: FDA-Public Use
  Company Number: US-MYLANLABS-2012S1010411

PATIENT
  Age: 61 Year
  Sex: Female

DRUGS (4)
  1. LISINOPRIL [Concomitant]
  2. DETROL LA [Concomitant]
  3. ZOLPIDEM TARTRATE [Suspect]
     Indication: INSOMNIA
     Route: 048
     Dates: start: 20120501, end: 20120501
  4. SINGULAIR [Concomitant]

REACTIONS (2)
  - CONVULSION [None]
  - MEMORY IMPAIRMENT [None]
